FAERS Safety Report 8353572-9 (Version None)
Quarter: 2012Q2

REPORT INFORMATION
  Report Type: 
  Country: None (occurrence: None)
  Receive Date: 20120511
  Receipt Date: 20110617
  Transmission Date: 20120825
  Serious: No
  Sender: FDA-Public Use
  Company Number: US-GLAXOSMITHKLINE-A0931886A

PATIENT
  Age: 74 Year
  Sex: Female

DRUGS (10)
  1. HERCEPTIN [Concomitant]
  2. ZOMETA [Concomitant]
  3. IMODIUM [Concomitant]
  4. TYKERB [Suspect]
     Indication: BREAST CANCER
     Dosage: 1250MCG PER DAY
     Route: 048
     Dates: start: 20110516
  5. HYDROCODONE BITARTRATE [Concomitant]
  6. DIAVAN [Concomitant]
  7. NEXIUM [Concomitant]
  8. FENOFIBRATE [Concomitant]
  9. NORVASC [Concomitant]
  10. SPIRIVA [Concomitant]

REACTIONS (5)
  - FATIGUE [None]
  - ONYCHALGIA [None]
  - ONYCHOCLASIS [None]
  - NAIL DISORDER [None]
  - DIARRHOEA [None]
